FAERS Safety Report 5809039-2 (Version None)
Quarter: 2008Q3

REPORT INFORMATION
  Report Type: 
  Country: None (occurrence: None)
  Receive Date: 20080710
  Receipt Date: 20080710
  Transmission Date: 20090109
  Serious: Yes (Hospitalization)
  Sender: FDA-Public Use
  Company Number: None

PATIENT
  Sex: Male
  Weight: 91 kg

DRUGS (9)
  1. TEMOZOLOMIDE [Suspect]
  2. ASPIRIN [Concomitant]
  3. BENAZEPRIL HYDROCHLORIDE [Concomitant]
  4. CITALOPRAM HYDROBROMIDE [Concomitant]
  5. FAMOTIDINE [Concomitant]
  6. METFORMIN HCL [Concomitant]
  7. TEGRETOL-XR [Concomitant]
  8. DEXAMETHASONE [Concomitant]
  9. PRAVASTATIN [Concomitant]

REACTIONS (1)
  - DIVERTICULITIS [None]
